FAERS Safety Report 7903368-4 (Version None)
Quarter: 2011Q4

REPORT INFORMATION
  Report Type: 
  Country: None (occurrence: None)
  Receive Date: 20111109
  Receipt Date: 20111104
  Transmission Date: 20120403
  Serious: Yes (Other)
  Sender: FDA-Public Use
  Company Number: US-PFIZER INC-2011246914

PATIENT
  Sex: Female

DRUGS (7)
  1. TOPROL-XL [Concomitant]
     Dosage: 100 MG, 1 TAB QAM
  2. HYDROCHLOROTHIAZIDE [Concomitant]
     Dosage: 25 MG, 1 TAB QAM
  3. CHANTIX [Suspect]
     Indication: SMOKING CESSATION THERAPY
     Dosage: 0.5 MG, UNK
     Route: 048
     Dates: start: 20110921, end: 20111014
  4. PROVERA [Concomitant]
     Dosage: 10 MG, 1X/DAY
  5. CHANTIX [Suspect]
  6. ZOLOFT [Concomitant]
     Dosage: 100 MG, 1X/DAY, AT HS
  7. ATIVAN [Concomitant]
     Indication: PANIC ATTACK
     Dosage: 0.5 MG, 3X/DAY

REACTIONS (2)
  - SUICIDAL IDEATION [None]
  - PANIC ATTACK [None]
